FAERS Safety Report 4532140-0 (Version None)
Quarter: 2004Q4

REPORT INFORMATION
  Report Type: 
  Country: None (occurrence: None)
  Receive Date: 20041220
  Receipt Date: 20041111
  Transmission Date: 20050328
  Serious: Yes (Life-Threatening)
  Sender: FDA-Public Use
  Company Number: US-BRISTOL-MYERS SQUIBB COMPANY-12765947

PATIENT
  Age: 49 Year
  Sex: Female
  Weight: 50 kg

DRUGS (3)
  1. PARAPLATIN AQ [Suspect]
     Indication: OVARIAN CANCER
     Route: 042
     Dates: start: 20041025, end: 20041025
  2. ANZEMET [Concomitant]
     Indication: PREMEDICATION
     Dates: start: 20041025, end: 20041025
  3. DECADRON [Concomitant]
     Indication: PREMEDICATION
     Dates: start: 20041025, end: 20041025

REACTIONS (6)
  - DYSPHAGIA [None]
  - FLUSHING [None]
  - HYPOAESTHESIA ORAL [None]
  - OEDEMA PERIPHERAL [None]
  - OROPHARYNGEAL SWELLING [None]
  - PRURITUS [None]
